FAERS Safety Report 7649140-4 (Version None)
Quarter: 2011Q3

REPORT INFORMATION
  Report Type: 
  Country: None (occurrence: None)
  Receive Date: 20110802
  Receipt Date: 20110727
  Transmission Date: 20111222
  Serious: Yes (Death)
  Sender: FDA-Public Use
  Company Number: US-JNJFOC-20110510018

PATIENT
  Sex: Male
  Weight: 87.09 kg

DRUGS (2)
  1. DURAGESIC-100 [Suspect]
     Indication: CANCER PAIN
     Dosage: STOPPED IN 2009
     Route: 062
     Dates: start: 20060101
  2. UNKNOWN MEDICATION [Concomitant]
     Route: 065

REACTIONS (2)
  - THINKING ABNORMAL [None]
  - COLON CANCER [None]
